FAERS Safety Report 9923637 (Version 1)
Quarter: 2014Q1

REPORT INFORMATION
  Report Type: Spontaneous
  Country: US (occurrence: US)
  Receive Date: 20140225
  Receipt Date: 20140225
  Transmission Date: 20141002
  Serious: Yes (Other)
  Sender: FDA-Public Use
  Company Number: US-AMGEN-USASP2013089831

PATIENT
  Age: 59 Year
  Sex: Female

DRUGS (1)
  1. ENBREL [Suspect]
     Indication: RHEUMATOID ARTHRITIS
     Dosage: 50 MG, QWK
     Route: 058
     Dates: start: 200907

REACTIONS (5)
  - Staphylococcal infection [Unknown]
  - Nasal dryness [Unknown]
  - Musculoskeletal pain [Unknown]
  - Laryngitis [Unknown]
  - Sinusitis [Unknown]
